FAERS Safety Report 9214982 (Version 5)
Quarter: 2017Q2

REPORT INFORMATION
  Report Type: Report from Study
  Country: JP (occurrence: JP)
  Receive Date: 20130405
  Receipt Date: 20170511
  Transmission Date: 20170830
  Serious: Yes (Hospitalization)
  Sender: FDA-Public Use
  Company Number: JP-PFIZER INC-2013103596

PATIENT
  Age: 54 Year
  Sex: Female
  Weight: 52.9 kg

DRUGS (17)
  1. AMLODIPINE [Concomitant]
     Active Substance: AMLODIPINE BESYLATE
     Indication: HYPERTENSION
     Dosage: 5 MG, 1X/DAY
     Route: 048
     Dates: start: 20081112, end: 20130123
  2. CRESTOR [Concomitant]
     Active Substance: ROSUVASTATIN CALCIUM
     Indication: HYPERLIPIDAEMIA
     Dosage: 2.5 MG, ONCE DAILY
     Route: 048
     Dates: start: 20081112, end: 20130327
  3. ACETAMINOPHEN. [Concomitant]
     Active Substance: ACETAMINOPHEN
     Indication: VIRAL UPPER RESPIRATORY TRACT INFECTION
     Dosage: 75 MG, THREE TIMES DAILY
     Route: 048
     Dates: start: 20130309, end: 20130314
  4. WHITE SOFT PARAFFIN [Concomitant]
     Active Substance: PARAFFIN
     Dosage: UNK
     Dates: end: 20130327
  5. AXITINIB [Suspect]
     Active Substance: AXITINIB
     Dosage: 3 MG, 2X/DAY
     Route: 048
     Dates: start: 20130314, end: 20130327
  6. DIOVAN [Concomitant]
     Active Substance: VALSARTAN
     Indication: HYPERTENSION
     Dosage: 80 MG, ONCE DAILY
     Route: 048
     Dates: start: 20130111, end: 20130327
  7. KENALOG IN ORABASE [Concomitant]
     Active Substance: TRIAMCINOLONE ACETONIDE
     Indication: STOMATITIS
     Dosage: AS NEEDED
     Route: 003
     Dates: start: 20130124, end: 20130413
  8. THYRADIN S [Concomitant]
     Active Substance: LEVOTHYROXINE SODIUM
     Indication: HYPOTHYROIDISM
     Dosage: 100 UG, 1X/DAY
     Route: 048
     Dates: start: 20130308, end: 20130327
  9. ANTOBRON [Concomitant]
     Active Substance: AMBROXOL
     Indication: VIRAL UPPER RESPIRATORY TRACT INFECTION
     Dosage: 15 MG, THREE TIMES DAILY
     Route: 048
     Dates: start: 20130309, end: 20130314
  10. SISAAL [Concomitant]
     Active Substance: DEXTROMETHORPHAN HYDROBROMIDE
     Indication: VIRAL UPPER RESPIRATORY TRACT INFECTION
     Dosage: 15 MG, THREE TIMES DAILY
     Route: 048
     Dates: start: 20130309, end: 20130314
  11. UREPEARL [Concomitant]
     Active Substance: UREA
     Dosage: UNK
     Route: 061
     Dates: end: 20130420
  12. ANHYDROUS CAFFEINE [Concomitant]
     Active Substance: CAFFEINE
     Indication: VIRAL UPPER RESPIRATORY TRACT INFECTION
     Dosage: 30 MG, THREE TIMES DAILY
     Route: 048
     Dates: start: 20130309, end: 20130314
  13. PROMETHAZINE METHYLENEDISALICYLATE [Concomitant]
     Active Substance: PROMETHAZINE METHYLENEDISALICYLATE
     Indication: VIRAL UPPER RESPIRATORY TRACT INFECTION
     Dosage: 6.75 MG, THREE TIMES DAILY
     Route: 048
     Dates: start: 20130309, end: 20130314
  14. AMLODIPINE [Concomitant]
     Active Substance: AMLODIPINE BESYLATE
     Dosage: 7.5 MG, 1X/DAY
     Route: 048
     Dates: start: 20130124, end: 20130206
  15. AMLODIPINE [Concomitant]
     Active Substance: AMLODIPINE BESYLATE
     Dosage: 10 MG, 1X/DAY
     Route: 048
     Dates: start: 20130207, end: 20130327
  16. AXITINIB [Suspect]
     Active Substance: AXITINIB
     Indication: RENAL CELL CARCINOMA
     Dosage: 5 MG, 2X/DAY
     Route: 048
     Dates: start: 20130110, end: 20130306
  17. SALICYLAMID [Concomitant]
     Indication: VIRAL UPPER RESPIRATORY TRACT INFECTION
     Dosage: 135 MG, THREE TIMES DAILY
     Route: 048
     Dates: start: 20130309, end: 20130314

REACTIONS (1)
  - Enteritis [Recovered/Resolved]

NARRATIVE: CASE EVENT DATE: 20130328
